FAERS Safety Report 21437404 (Version 1)
Quarter: 2022Q4

REPORT INFORMATION
  Report Type: Spontaneous
  Country: US (occurrence: US)
  Receive Date: 20221011
  Receipt Date: 20221011
  Transmission Date: 20230112
  Serious: No
  Sender: FDA-Public Use
  Company Number: US-CHIESI-2021CHF05060

PATIENT
  Sex: Male
  Weight: 13 kg

DRUGS (6)
  1. FERRIPROX [Suspect]
     Active Substance: DEFERIPRONE
     Indication: Transfusion
     Dosage: 250 MILLIGRAM, BID
     Route: 048
     Dates: start: 20210928
  2. FERRIPROX [Suspect]
     Active Substance: DEFERIPRONE
     Indication: Haemochromatosis
  3. FERRIPROX [Suspect]
     Active Substance: DEFERIPRONE
     Indication: Porphyria acute
  4. FERRIPROX [Suspect]
     Active Substance: DEFERIPRONE
     Indication: Off label use
  5. HEPARIN SODIUM [Concomitant]
     Active Substance: HEPARIN SODIUM
     Indication: Product used for unknown indication
     Dosage: UNK
  6. VITAMIN D NOS [Concomitant]
     Active Substance: VITAMIN D NOS
     Indication: Product used for unknown indication
     Dosage: UNK

REACTIONS (4)
  - Taste disorder [Unknown]
  - Vomiting [Recovering/Resolving]
  - Off label use [Not Recovered/Not Resolved]
  - Off label use [Not Recovered/Not Resolved]

NARRATIVE: CASE EVENT DATE: 20210101
